FAERS Safety Report 9445640 (Version 2)
Quarter: 2013Q4

REPORT INFORMATION
  Report Type: Report from Study
  Country: CA (occurrence: CA)
  Receive Date: 20130807
  Receipt Date: 20131111
  Transmission Date: 20140711
  Serious: Yes (Hospitalization)
  Sender: FDA-Public Use
  Company Number: CA-TEVA-424269USA

PATIENT
  Age: 57 Year
  Sex: Male
  Weight: 77.6 kg

DRUGS (6)
  1. BENDAMUSTINE [Suspect]
     Indication: CHRONIC LYMPHOCYTIC LEUKAEMIA
     Route: 042
     Dates: start: 20130410
  2. BENDAMUSTINE [Suspect]
     Route: 042
     Dates: start: 20130715
  3. RITUXIMAB [Suspect]
     Indication: CHRONIC LYMPHOCYTIC LEUKAEMIA
     Dosage: ONCE IN 28 DAYS
     Route: 042
     Dates: start: 20130409
  4. RITUXIMAB [Suspect]
     Dosage: ONCE IN 28 DAYS
     Route: 042
     Dates: start: 20130712
  5. IBRUTINIB/ PLACEBO [Suspect]
     Indication: CHRONIC LYMPHOCYTIC LEUKAEMIA
     Dosage: 420 MILLIGRAM DAILY;
     Dates: start: 20130410
  6. IBRUTINIB/ PLACEBO [Suspect]
     Dosage: 420 MILLIGRAM DAILY;
     Dates: start: 20130724

REACTIONS (1)
  - Chronic obstructive pulmonary disease [Recovered/Resolved with Sequelae]
